FAERS Safety Report 4335994-6 (Version None)
Quarter: 2004Q2

REPORT INFORMATION
  Report Type: 
  Country: None (occurrence: None)
  Receive Date: 20040406
  Receipt Date: 20040324
  Transmission Date: 20050107
  Serious: Yes (Hospitalization)
  Sender: FDA-Public Use
  Company Number: 2004204123GB

PATIENT
  Age: 74 Year
  Sex: Female

DRUGS (1)
  1. NICORETTE [Suspect]
     Indication: SMOKING CESSATION THERAPY
     Dosage: 15 MG QD, TRANSDERMAL
     Route: 062
     Dates: start: 20040207, end: 20040208

REACTIONS (1)
  - MYOCARDIAL INFARCTION [None]
